FAERS Safety Report 18118371 (Version 1)
Quarter: 2020Q3

REPORT INFORMATION
  Report Type: Spontaneous
  Country: US (occurrence: US)
  Receive Date: 20200806
  Receipt Date: 20200806
  Transmission Date: 20201103
  Serious: Yes (Disabling)
  Sender: FDA-Public Use
  Company Number: None

PATIENT
  Age: 45 Year
  Sex: Male
  Weight: 92.25 kg

DRUGS (5)
  1. FLONASE [Concomitant]
     Active Substance: FLUTICASONE PROPIONATE
  2. PURINETHOL [Concomitant]
     Active Substance: MERCAPTOPURINE
  3. SUDAFED [Concomitant]
     Active Substance: PSEUDOEPHEDRINE HYDROCHLORIDE
  4. SOLIMO HAND SANITIZER [Suspect]
     Active Substance: ALCOHOL
     Indication: INFECTION PROPHYLAXIS
     Dosage: ?          QUANTITY:3 DROP(S);OTHER FREQUENCY:5?10 TIMES PER DAY;?
     Route: 061
     Dates: start: 20200620, end: 20200724
  5. TYLENOL [Concomitant]
     Active Substance: ACETAMINOPHEN

REACTIONS (6)
  - Fatigue [None]
  - Nausea [None]
  - Product odour abnormal [None]
  - Dizziness [None]
  - Dysgeusia [None]
  - Alanine aminotransferase increased [None]

NARRATIVE: CASE EVENT DATE: 20200701
